FAERS Safety Report 25917667 (Version 1)
Quarter: 2025Q4

REPORT INFORMATION
  Report Type: Spontaneous
  Country: EU (occurrence: EU)
  Receive Date: 20251014
  Receipt Date: 20251014
  Transmission Date: 20260118
  Serious: Yes (Hospitalization)
  Sender: SAMSUNG BIOEPIS
  Company Number: None

PATIENT
  Age: 16 Year
  Sex: Female
  Weight: 71.7 kg

DRUGS (4)
  1. INFLIXIMAB [Suspect]
     Active Substance: INFLIXIMAB
     Indication: Crohn^s disease
     Dosage: DOSAGE 400 + FOLLOW-UP BY NACL 0.9%?? 11:05, 12:54;
     Route: 042
     Dates: start: 20250923, end: 20250923
  2. FERRIC CARBOXYMALTOSE [Suspect]
     Active Substance: FERRIC CARBOXYMALTOSE
     Indication: Iron deficiency anaemia
     Dosage: DOSAGE 710 + FOLLOW-UP BY NACL 0.9% , 13:36, 14:08.
     Route: 042
     Dates: start: 20250923, end: 20250923
  3. AZATHIOPRINE [Concomitant]
     Active Substance: AZATHIOPRINE
     Indication: Crohn^s disease
     Dosage: DOSAGE 50
     Route: 048
     Dates: start: 20250909
  4. VITAMIN D [Concomitant]
     Active Substance: VITAMIN D NOS
     Indication: Vitamin D deficiency
     Dosage: DOSAGE 1000
     Route: 048
     Dates: start: 20250909

REACTIONS (3)
  - Urticaria [Recovered/Resolved]
  - Erythema [Recovered/Resolved]
  - Pruritus [Recovered/Resolved]

NARRATIVE: CASE EVENT DATE: 20250923
